FAERS Safety Report 4897044-2 (Version None)
Quarter: 2006Q1

REPORT INFORMATION
  Report Type: 
  Country: None (occurrence: None)
  Receive Date: 20060127
  Receipt Date: 20060116
  Transmission Date: 20060701
  Serious: Yes (Hospitalization)
  Sender: FDA-Public Use
  Company Number: CLOF-10182

PATIENT
  Age: 4 Year
  Sex: Male

DRUGS (1)
  1. CLOFARABINE [Suspect]
     Indication: ACUTE LYMPHOCYTIC LEUKAEMIA
     Dosage: 42 MG QD IV
     Route: 042
     Dates: start: 20060110, end: 20060113

REACTIONS (8)
  - ABDOMINAL PAIN [None]
  - ANXIETY [None]
  - FLUID OVERLOAD [None]
  - HYPERSENSITIVITY [None]
  - HYPOXIA [None]
  - INFUSION RELATED REACTION [None]
  - PULMONARY OEDEMA [None]
  - PYREXIA [None]
